FAERS Safety Report 16598961 (Version 1)
Quarter: 2019Q3

REPORT INFORMATION
  Report Type: Spontaneous
  Country: US (occurrence: US)
  Receive Date: 20190719
  Receipt Date: 20190719
  Transmission Date: 20191004
  Serious: No
  Sender: FDA-Public Use
  Company Number: US-SA-2019SA194420

PATIENT
  Age: 22 Year
  Sex: Male

DRUGS (3)
  1. DUPIXENT [Suspect]
     Active Substance: DUPILUMAB
     Indication: COMBINED IMMUNODEFICIENCY
     Dosage: 300 MG, QOW
     Route: 058
     Dates: start: 20180524
  2. VALACYCLOVIR [Concomitant]
     Active Substance: VALACYCLOVIR HYDROCHLORIDE
  3. ENALAPRIL [Concomitant]
     Active Substance: ENALAPRIL

REACTIONS (2)
  - Product use in unapproved indication [Unknown]
  - Condition aggravated [Not Recovered/Not Resolved]
